FAERS Safety Report 11623407 (Version 1)
Quarter: 2015Q4

REPORT INFORMATION
  Report Type: Spontaneous
  Country: US (occurrence: US)
  Receive Date: 20151013
  Receipt Date: 20151013
  Transmission Date: 20160304
  Serious: No
  Sender: FDA-Public Use
  Company Number: US-JNJFOC-20150309488

PATIENT
  Sex: Female
  Weight: 49.9 kg

DRUGS (8)
  1. ASACOL [Concomitant]
     Active Substance: MESALAMINE
     Dosage: 4 TIMES A DAY
     Route: 065
  2. TYLENOL [Suspect]
     Active Substance: ACETAMINOPHEN
     Route: 048
  3. BENADRYL [Suspect]
     Active Substance: DIPHENHYDRAMINE HYDROCHLORIDE
     Indication: INFUSION RELATED REACTION
     Route: 042
     Dates: start: 201403
  4. REMICADE [Concomitant]
     Active Substance: INFLIXIMAB
     Indication: COLITIS ULCERATIVE
     Route: 042
     Dates: start: 201403, end: 201405
  5. TYLENOL [Suspect]
     Active Substance: ACETAMINOPHEN
     Indication: INFUSION RELATED REACTION
     Route: 048
     Dates: start: 201403
  6. REMICADE [Concomitant]
     Active Substance: INFLIXIMAB
     Indication: COLITIS ULCERATIVE
     Dosage: EVERY
     Route: 042
     Dates: start: 200804, end: 201403
  7. CANASA [Concomitant]
     Active Substance: MESALAMINE
     Indication: ANAL HAEMORRHAGE
     Dosage: EVERY NIGHT
     Route: 065
     Dates: start: 201411
  8. 6-MP (MERCAPTOPURINE) [Concomitant]
     Active Substance: MERCAPTOPURINE ANHYDROUS
     Route: 065

REACTIONS (2)
  - Product use issue [Unknown]
  - Somnolence [Unknown]
